FAERS Safety Report 6044031-7 (Version None)
Quarter: 2009Q1

REPORT INFORMATION
  Report Type: 
  Country: None (occurrence: None)
  Receive Date: 20090114
  Receipt Date: 20090114
  Transmission Date: 20090719
  Serious: Yes (Death)
  Sender: FDA-Public Use
  Company Number: None

PATIENT
  Age: 27 Year
  Sex: Female
  Weight: 54.4316 kg

DRUGS (1)
  1. LUPRON [Suspect]
     Indication: ABDOMINAL PAIN LOWER
     Dosage: 3.75 MG 1
     Dates: start: 20061017, end: 20061017

REACTIONS (1)
  - DEATH [None]
